FAERS Safety Report 21313896 (Version 8)
Quarter: 2025Q3

REPORT INFORMATION
  Report Type: Report from Study
  Country: CA (occurrence: CA)
  Receive Date: 20220909
  Receipt Date: 20250812
  Transmission Date: 20251021
  Serious: Yes (Other)
  Sender: TAKEDA
  Company Number: CA-TAKEDA-2022TUS046570

PATIENT
  Age: 54 Year
  Sex: Female

DRUGS (12)
  1. VEDOLIZUMAB [Suspect]
     Active Substance: VEDOLIZUMAB
     Indication: Colitis ulcerative
  2. VEDOLIZUMAB [Suspect]
     Active Substance: VEDOLIZUMAB
  3. VEDOLIZUMAB [Suspect]
     Active Substance: VEDOLIZUMAB
  4. VEDOLIZUMAB [Suspect]
     Active Substance: VEDOLIZUMAB
  5. VEDOLIZUMAB [Suspect]
     Active Substance: VEDOLIZUMAB
  6. VEDOLIZUMAB [Suspect]
     Active Substance: VEDOLIZUMAB
  7. VEDOLIZUMAB [Suspect]
     Active Substance: VEDOLIZUMAB
  8. VEDOLIZUMAB [Suspect]
     Active Substance: VEDOLIZUMAB
     Dosage: 300 MILLIGRAM, Q4WEEKS
     Dates: start: 20250808
  9. MESALAMINE [Concomitant]
     Active Substance: MESALAMINE
  10. Salofalk [Concomitant]
  11. PENTASA [Concomitant]
     Active Substance: MESALAMINE
  12. AMITRIPTYLINE [Concomitant]
     Active Substance: AMITRIPTYLINE

REACTIONS (13)
  - Colitis ulcerative [Not Recovered/Not Resolved]
  - Haematochezia [Recovered/Resolved]
  - Migraine [Recovered/Resolved]
  - Headache [Unknown]
  - Irritable bowel syndrome [Not Recovered/Not Resolved]
  - COVID-19 [Unknown]
  - Mucous stools [Unknown]
  - Dysphagia [Unknown]
  - Off label use [Unknown]
  - Ear pain [Unknown]
  - Abdominal pain [Not Recovered/Not Resolved]
  - Oropharyngeal pain [Unknown]
  - Frequent bowel movements [Not Recovered/Not Resolved]

NARRATIVE: CASE EVENT DATE: 20220801
